FAERS Safety Report 4748937-8 (Version None)
Quarter: 2005Q3

REPORT INFORMATION
  Report Type: 
  Country: None (occurrence: None)
  Receive Date: 20050819
  Receipt Date: 20050810
  Transmission Date: 20060218
  Serious: Yes (Hospitalization)
  Sender: FDA-Public Use
  Company Number: CA-MERCK-0508CAN00083

PATIENT
  Age: 67 Year
  Sex: Male

DRUGS (5)
  1. ELAVIL [Suspect]
     Route: 048
  2. COGENTIN [Suspect]
     Route: 048
  3. PAROXETINE [Suspect]
     Route: 065
  4. VERAPAMIL [Suspect]
     Route: 065
  5. FERROUS GLUCONATE [Suspect]
     Route: 065

REACTIONS (3)
  - AMNESIA [None]
  - CONSTIPATION [None]
  - DEPRESSION [None]
